FAERS Safety Report 19468922 (Version 1)
Quarter: 2021Q2

REPORT INFORMATION
  Report Type: Report from Study
  Country: NL (occurrence: NL)
  Receive Date: 20210628
  Receipt Date: 20210628
  Transmission Date: 20210717
  Serious: Yes (Hospitalization)
  Sender: FDA-Public Use
  Company Number: NL-MYLANLABS-2018M1008336

PATIENT

DRUGS (7)
  1. METFORMINE                         /00082701/ [Concomitant]
     Active Substance: METFORMIN HYDROCHLORIDE
     Dosage: UNK
  2. FLUOROURACIL. [Suspect]
     Active Substance: FLUOROURACIL
     Indication: COLORECTAL CANCER
     Dosage: 2400 MILLIGRAM/SQ. METER, Q2W (DATE OF LAST DOSE PRIOR TO AE: 15/AUG/2015  )
     Route: 041
     Dates: start: 20150730, end: 20150815
  3. FLUOROURACIL. [Suspect]
     Active Substance: FLUOROURACIL
     Dosage: 400 MILLIGRAM/SQ. METER, Q2W (DATE OF LAST DOSE PRIOR TO AE: 15/AUG/2015 )
     Route: 040
     Dates: start: 20150730, end: 20150815
  4. OXALIPLATIN. [Suspect]
     Active Substance: OXALIPLATIN
     Indication: COLORECTAL CANCER
     Dosage: 85 MILLIGRAM/SQ. METER, Q2W (DATE OF LAST DOSE PRIOR TO AE: 13/AUG/2015)
     Route: 042
     Dates: start: 20150730, end: 20150813
  5. BEVACIZUMAB. [Suspect]
     Active Substance: BEVACIZUMAB
     Indication: COLORECTAL CANCER
     Dosage: 5 MILLIGRAM/KILOGRAM, Q2W (DATE OF LAST DOSE PRIOR TO AE: 13/AUG/2015  )
     Route: 042
     Dates: start: 20150730, end: 20150813
  6. AMLODIPINE [Concomitant]
     Active Substance: AMLODIPINE BESYLATE
     Dosage: UNK
  7. LEUCOVORIN                         /00566701/ [Suspect]
     Active Substance: LEUCOVORIN
     Indication: COLORECTAL CANCER
     Dosage: 400 MILLIGRAM/SQ. METER, Q2W (DATE OF LAST DOSE PRIOR TO AE: 13/AUG/2015)
     Route: 042
     Dates: start: 20150730, end: 20150813

REACTIONS (4)
  - Large intestine perforation [Recovered/Resolved]
  - Abdominal pain [Recovered/Resolved]
  - Diverticulitis [Recovered/Resolved]
  - Wound infection [Recovered/Resolved]

NARRATIVE: CASE EVENT DATE: 20150821
